FAERS Safety Report 6541147-3 (Version None)
Quarter: 2010Q1

REPORT INFORMATION
  Report Type: 
  Country: None (occurrence: None)
  Receive Date: 20100118
  Receipt Date: 20091202
  Transmission Date: 20100710
  Serious: Yes (Hospitalization)
  Sender: FDA-Public Use
  Company Number: A0802600A

PATIENT
  Age: 48 Year
  Sex: Male
  Weight: 90.9 kg

DRUGS (9)
  1. AVANDIA [Suspect]
     Dosage: 4MG PER DAY
     Route: 048
     Dates: start: 20050101
  2. LANTUS [Concomitant]
  3. MECLIZINE [Concomitant]
  4. VASOTEC [Concomitant]
  5. VERAPAMIL [Concomitant]
  6. PEPCID [Concomitant]
  7. METOCLOPRAMIDE [Concomitant]
  8. DOCUSATE SODIUM [Concomitant]
  9. METAMUCIL [Concomitant]

REACTIONS (4)
  - CEREBROVASCULAR ACCIDENT [None]
  - CONDITION AGGRAVATED [None]
  - HAEMORRHAGIC STROKE [None]
  - HYPERTENSION [None]
